FAERS Safety Report 25592398 (Version 2)
Quarter: 2025Q3

REPORT INFORMATION
  Report Type: Spontaneous
  Country: US (occurrence: US)
  Receive Date: 20250722
  Receipt Date: 20250822
  Transmission Date: 20251021
  Serious: No
  Sender: MYLAN
  Company Number: US-MYLANLABS-2025M1059689

PATIENT
  Age: 37 Year
  Sex: Female
  Weight: 58.97 kg

DRUGS (16)
  1. FENTANYL TRANSDERMAL SYSTEM [Suspect]
     Active Substance: FENTANYL
     Indication: Ehlers-Danlos syndrome
     Dosage: 25 MICROGRAM, QH (PER HOUR,ONE PATCH EVERY 72 HOURS)
     Dates: start: 20250705
  2. FENTANYL TRANSDERMAL SYSTEM [Suspect]
     Active Substance: FENTANYL
     Indication: Pain
     Dosage: 25 MICROGRAM, QH (PER HOUR,ONE PATCH EVERY 72 HOURS)
     Route: 062
     Dates: start: 20250705
  3. FENTANYL TRANSDERMAL SYSTEM [Suspect]
     Active Substance: FENTANYL
     Indication: Joint dislocation
     Dosage: 25 MICROGRAM, QH (PER HOUR,ONE PATCH EVERY 72 HOURS)
     Route: 062
     Dates: start: 20250705
  4. FENTANYL TRANSDERMAL SYSTEM [Suspect]
     Active Substance: FENTANYL
     Dosage: 25 MICROGRAM, QH (PER HOUR,ONE PATCH EVERY 72 HOURS)
     Dates: start: 20250705
  5. IBUPROFEN [Concomitant]
     Active Substance: IBUPROFEN
  6. IBUPROFEN [Concomitant]
     Active Substance: IBUPROFEN
     Route: 065
  7. IBUPROFEN [Concomitant]
     Active Substance: IBUPROFEN
     Route: 065
  8. IBUPROFEN [Concomitant]
     Active Substance: IBUPROFEN
  9. GABAPENTIN [Concomitant]
     Active Substance: GABAPENTIN
  10. GABAPENTIN [Concomitant]
     Active Substance: GABAPENTIN
     Route: 065
  11. GABAPENTIN [Concomitant]
     Active Substance: GABAPENTIN
     Route: 065
  12. GABAPENTIN [Concomitant]
     Active Substance: GABAPENTIN
  13. HYDROMORPHONE [Concomitant]
     Active Substance: HYDROMORPHONE
  14. HYDROMORPHONE [Concomitant]
     Active Substance: HYDROMORPHONE
     Route: 065
  15. HYDROMORPHONE [Concomitant]
     Active Substance: HYDROMORPHONE
     Route: 065
  16. HYDROMORPHONE [Concomitant]
     Active Substance: HYDROMORPHONE

REACTIONS (2)
  - Wrong technique in product usage process [Unknown]
  - Product adhesion issue [Unknown]

NARRATIVE: CASE EVENT DATE: 20250705
